FAERS Safety Report 25612087 (Version 1)
Quarter: 2025Q3

REPORT INFORMATION
  Report Type: Spontaneous
  Country: EU (occurrence: EU)
  Receive Date: 20250728
  Receipt Date: 20250728
  Transmission Date: 20251020
  Serious: Yes (Life-Threatening, Hospitalization, Disabling)
  Sender: AMGEN
  Company Number: None

PATIENT
  Age: 68 Year
  Sex: Female
  Weight: 57 kg

DRUGS (5)
  1. PROLIA [Suspect]
     Active Substance: DENOSUMAB
     Indication: Osteoporosis
     Route: 058
     Dates: start: 20250606
  2. TERIPARATIDE [Concomitant]
     Active Substance: TERIPARATIDE
     Route: 065
  3. ZALDIAR [Concomitant]
     Active Substance: ACETAMINOPHEN\TRAMADOL HYDROCHLORIDE
     Route: 065
  4. OMEPRAZOLE [Concomitant]
     Active Substance: OMEPRAZOLE
     Route: 065
  5. ETANERCEPT [Concomitant]
     Active Substance: ETANERCEPT
     Route: 065

REACTIONS (3)
  - Arthritis [Not Recovered/Not Resolved]
  - Malaise [Not Recovered/Not Resolved]
  - Pain [Not Recovered/Not Resolved]

NARRATIVE: CASE EVENT DATE: 20250606
